FAERS Safety Report 18392146 (Version 1)
Quarter: 2020Q4

REPORT INFORMATION
  Report Type: Report from Study
  Country: US (occurrence: US)
  Receive Date: 20201016
  Receipt Date: 20201016
  Transmission Date: 20210114
  Serious: Yes (Other)
  Sender: FDA-Public Use
  Company Number: US-CHIESI-2020CHF04884

PATIENT
  Age: 81 Year
  Sex: Female
  Weight: 65 kg

DRUGS (2)
  1. DEFERIPRONE [Suspect]
     Active Substance: DEFERIPRONE
     Indication: HAEMOCHROMATOSIS
     Dosage: 16 MILLIGRAM/KILOGRAM, TID
     Route: 048
     Dates: start: 20200527, end: 20200818
  2. DEFERIPRONE [Suspect]
     Active Substance: DEFERIPRONE
     Indication: MYELODYSPLASTIC SYNDROME
     Dosage: 15 MILLIGRAM/KILOGRAM, BID
     Route: 048
     Dates: start: 20200818

REACTIONS (3)
  - Tachycardia [Recovering/Resolving]
  - Haemorrhage [Unknown]
  - Transfusion [Recovering/Resolving]

NARRATIVE: CASE EVENT DATE: 202009
